FAERS Safety Report 9313558 (Version 1)
Quarter: 2013Q2

REPORT INFORMATION
  Report Type: Spontaneous
  Country: US (occurrence: US)
  Receive Date: 20130528
  Receipt Date: 20130528
  Transmission Date: 20140414
  Serious: Yes (Hospitalization)
  Sender: FDA-Public Use
  Company Number: US-UCBSA-086560

PATIENT
  Age: 58 Year
  Sex: Female

DRUGS (1)
  1. CIMZIA [Suspect]
     Indication: RHEUMATOID ARTHRITIS
     Dosage: RECOMENDED DOSE: 400 MG ONCE EVERY 2 WEEKS, PATIENT TOOK SINGLE DOSE OF 200 MG
     Dates: start: 20130418, end: 20130418

REACTIONS (2)
  - Atypical pneumonia [Not Recovered/Not Resolved]
  - Drug administration error [Unknown]
